FAERS Safety Report 9339268 (Version 2)
Quarter: 2013Q3

REPORT INFORMATION
  Report Type: Report from Study
  Country: JP (occurrence: JP)
  Receive Date: 20130610
  Receipt Date: 20130701
  Transmission Date: 20140515
  Serious: Yes (Death)
  Sender: FDA-Public Use
  Company Number: JP-009507513-1306JPN003525

PATIENT
  Age: 62 Year
  Sex: Male
  Weight: 63 kg

DRUGS (11)
  1. TEMOZOLOMIDE [Suspect]
     Indication: GLIOBLASTOMA MULTIFORME
     Dosage: 150 MG/SQM
     Route: 041
     Dates: start: 20120402, end: 20120406
  2. TEMOZOLOMIDE [Suspect]
     Dosage: 150 MG/SQM
     Route: 041
     Dates: start: 20120507, end: 20120511
  3. TEMOZOLOMIDE [Suspect]
     Dosage: 150 MG/SQM
     Route: 041
     Dates: start: 20120604, end: 20120608
  4. TEMOZOLOMIDE [Suspect]
     Dosage: 150 MG/SQM
     Route: 041
     Dates: start: 20120702, end: 20120706
  5. TEMOZOLOMIDE [Suspect]
     Dosage: 150 MG/SQM
     Route: 041
     Dates: start: 20120730, end: 20120803
  6. TEMODAL [Suspect]
     Indication: GLIOBLASTOMA MULTIFORME
     Dosage: UNK
     Route: 048
     Dates: start: 20101125, end: 20120306
  7. BAKTAR [Concomitant]
     Indication: ANTIFUNGAL PROPHYLAXIS
     Dosage: UNK
     Route: 048
     Dates: start: 20101125
  8. ASPIRIN [Concomitant]
     Dosage: UNK
     Route: 048
     Dates: start: 20110805
  9. TEGRETOL [Concomitant]
     Dosage: UNK
     Route: 048
     Dates: start: 20120302
  10. JUVELA [Concomitant]
     Indication: PROPHYLAXIS
     Dosage: UNK
     Route: 048
     Dates: start: 20110805
  11. FAMOTIDINE [Concomitant]
     Indication: PROPHYLAXIS
     Dosage: UNK
     Route: 048
     Dates: start: 20110520

REACTIONS (1)
  - Disease progression [Fatal]
